FAERS Safety Report 13704371 (Version 1)
Quarter: 2017Q2

REPORT INFORMATION
  Report Type: Spontaneous
  Country: US (occurrence: US)
  Receive Date: 20170630
  Receipt Date: 20170630
  Transmission Date: 20170830
  Serious: No
  Sender: FDA-Public Use
  Company Number: US-ENDO PHARMACEUTICALS INC-2016-005651

PATIENT
  Age: 58 Year
  Sex: Female
  Weight: 77.18 kg

DRUGS (3)
  1. LORAZEPAM TABLETS 2MG [Suspect]
     Active Substance: LORAZEPAM
     Indication: OBSESSIVE-COMPULSIVE DISORDER
  2. LORAZEPAM TABLETS 2MG [Suspect]
     Active Substance: LORAZEPAM
     Indication: ANXIETY
     Dosage: 2 MG, TID
     Route: 048
     Dates: start: 20160905
  3. LORAZEPAM TABLETS 2MG [Suspect]
     Active Substance: LORAZEPAM
     Indication: PANIC ATTACK

REACTIONS (10)
  - Choking [None]
  - Mouth breathing [None]
  - Dyspepsia [None]
  - Chest pain [None]
  - Sinus disorder [None]
  - Wrong technique in product usage process [Unknown]
  - Product solubility abnormal [Unknown]
  - Dry eye [None]
  - Eructation [None]
  - Abdominal pain upper [None]

NARRATIVE: CASE EVENT DATE: 20160905
